FAERS Safety Report 20386402 (Version 1)
Quarter: 2022Q1

REPORT INFORMATION
  Report Type: Spontaneous
  Country: US (occurrence: US)
  Receive Date: 20220127
  Receipt Date: 20220127
  Transmission Date: 20220423
  Serious: No
  Sender: FDA-Public Use
  Company Number: US-ALLERGAN-2144487US

PATIENT
  Sex: Female

DRUGS (5)
  1. BOTOX [Suspect]
     Active Substance: ONABOTULINUMTOXINA
     Indication: Migraine
     Dosage: 200 UNITS, SINGLE
     Dates: start: 20211222, end: 20211222
  2. LYRICA [Concomitant]
     Active Substance: PREGABALIN
     Indication: Migraine
  3. METOPROLOL [Concomitant]
     Active Substance: METOPROLOL
     Indication: Migraine
  4. STADOL [Concomitant]
     Active Substance: BUTORPHANOL TARTRATE
     Indication: Migraine
     Dosage: UNK, PRN
  5. NURTEC ODT [Concomitant]
     Active Substance: RIMEGEPANT SULFATE
     Indication: Migraine
     Dosage: UNK, PRN

REACTIONS (2)
  - Off label use [Unknown]
  - Drug ineffective [Unknown]
